FAERS Safety Report 9511468 (Version 1)
Quarter: 2013Q3

REPORT INFORMATION
  Report Type: Spontaneous
  Country: US (occurrence: None)
  Receive Date: 20130909
  Receipt Date: 20130909
  Transmission Date: 20140515
  Serious: Yes (Hospitalization)
  Sender: FDA-Public Use
  Company Number: None

PATIENT
  Age: 19 Year
  Sex: Female
  Weight: 86.18 kg

DRUGS (1)
  1. AUGMENTIN [Suspect]
     Indication: EAR INFECTION
     Dosage: 875 TEN DAYS TWICE DAILY TAKEN BY MOUTH
     Route: 048
     Dates: start: 20130715, end: 20130725

REACTIONS (5)
  - Lip swelling [None]
  - Ocular hyperaemia [None]
  - Skin exfoliation [None]
  - Urticaria [None]
  - Rash generalised [None]
